FAERS Safety Report 9645636 (Version 2)
Quarter: 2013Q4

REPORT INFORMATION
  Report Type: Report from Study
  Country: JP (occurrence: JP)
  Receive Date: 20131025
  Receipt Date: 20131112
  Transmission Date: 20140711
  Serious: Yes (Life-Threatening, Other)
  Sender: FDA-Public Use
  Company Number: JP-TAKEDA-TCI2013A06243

PATIENT
  Age: 73 Year
  Sex: Female
  Weight: 60 kg

DRUGS (13)
  1. LANSOPRAZOLE [Suspect]
     Indication: PROPHYLAXIS AGAINST GASTROINTESTINAL ULCER
     Dosage: 15 MG, QD
     Route: 048
     Dates: start: 20120911, end: 20130111
  2. BENET TABLETS 17.5MG [Concomitant]
     Dosage: 17.5 MG, 1/WEEK
     Route: 048
  3. LOXONIN [Concomitant]
     Indication: SCOLIOSIS
     Dosage: 180 MG,1 DAYS
     Route: 065
  4. LOXONIN [Concomitant]
     Indication: LUMBAR SPINAL STENOSIS
  5. TRAMCET [Concomitant]
     Indication: SCOLIOSIS
     Dosage: 3 DF, 1DAYS
     Route: 048
  6. TRAMCET [Concomitant]
     Indication: LUMBAR SPINAL STENOSIS
  7. FORTEO [Concomitant]
     Dosage: UNK
     Route: 058
  8. FORTEO [Concomitant]
     Route: 058
  9. AMOBAN [Concomitant]
     Dosage: 7.5 MG, 1 DAYS
     Route: 048
  10. MERISLON [Concomitant]
     Dosage: 36 MG, 1DAYS
     Route: 048
  11. BIOFERMIN                          /01617201/ [Concomitant]
     Dosage: 3 G, 1DAYS
     Route: 048
  12. MUCOSTA [Concomitant]
     Dosage: 3 DF, 1DAYS
     Route: 048
  13. HALCION [Concomitant]
     Dosage: 0.25 MG, 1 DAYS
     Route: 048

REACTIONS (1)
  - Meningitis [Recovered/Resolved with Sequelae]
